FAERS Safety Report 8398423-1 (Version None)
Quarter: 2012Q1

REPORT INFORMATION
  Report Type: 
  Country: None (occurrence: None)
  Receive Date: 20120323
  Receipt Date: 20110413
  Transmission Date: 20120608
  Serious: Yes (Hospitalization, Other)
  Sender: FDA-Public Use
  Company Number: 163-21880-10091690

PATIENT
  Age: 67 Year
  Sex: Female
  Weight: 77.5651 kg

DRUGS (10)
  1. CELEBREX [Concomitant]
  2. ACIPHEX [Concomitant]
  3. COMPAZINE [Concomitant]
  4. ALLOPURINOL [Concomitant]
  5. COUMADIN [Concomitant]
  6. AMARYL [Concomitant]
  7. DECADRON [Concomitant]
  8. LANTUS [Concomitant]
  9. METOPROLOL TARTRATE [Concomitant]
  10. REVLIMID [Suspect]
     Indication: MULTIPLE MYELOMA
     Dosage: 10 MG, 1 IN 1 D, PO
     Route: 048
     Dates: start: 20100826

REACTIONS (9)
  - THROMBOCYTOPENIA [None]
  - NEUTROPENIA [None]
  - PANCYTOPENIA [None]
  - VENOUS INSUFFICIENCY [None]
  - RASH MACULO-PAPULAR [None]
  - FATIGUE [None]
  - RASH MACULAR [None]
  - CARDIAC FAILURE CONGESTIVE [None]
  - ABDOMINAL PAIN UPPER [None]
